FAERS Safety Report 4809845-7 (Version None)
Quarter: 2005Q4

REPORT INFORMATION
  Report Type: 
  Country: None (occurrence: None)
  Receive Date: 20051026
  Receipt Date: 20051017
  Transmission Date: 20060501
  Serious: Yes (Life-Threatening, Other)
  Sender: FDA-Public Use
  Company Number: US-JNJFOC-20050903586

PATIENT
  Sex: Female
  Weight: 55.79 kg

DRUGS (3)
  1. REMICADE [Suspect]
     Indication: RHEUMATOID ARTHRITIS
     Dosage: 5 DOSES
     Route: 042
  2. ADALIMUMAB [Concomitant]
  3. METHOTREXATE [Concomitant]

REACTIONS (2)
  - LUNG ADENOCARCINOMA [None]
  - URTICARIA [None]
